FAERS Safety Report 4593982-9 (Version None)
Quarter: 2005Q1

REPORT INFORMATION
  Report Type: 
  Country: None (occurrence: None)
  Receive Date: 20050218
  Receipt Date: 20050204
  Transmission Date: 20050727
  Serious: Yes (Hospitalization, Other)
  Sender: FDA-Public Use
  Company Number: 2004RR-00453

PATIENT
  Age: 38 Year
  Sex: Female

DRUGS (3)
  1. IBUPROFEN [Suspect]
     Indication: PAIN
     Dosage: 1.2 G, QD, ORAL
     Route: 048
     Dates: start: 20050117, end: 20050124
  2. METHOTREXATE [Suspect]
     Dosage: 10 MG, 1/WEEK, ORAL
     Route: 048
     Dates: start: 20000101, end: 20050124
  3. LOESTRIN 1.5/30 [Concomitant]

REACTIONS (7)
  - DRUG INTERACTION [None]
  - DRUG TOXICITY [None]
  - HEPATOTOXICITY [None]
  - INFECTION IN AN IMMUNOCOMPROMISED HOST [None]
  - LIVER FUNCTION TEST ABNORMAL [None]
  - PLATELET COUNT DECREASED [None]
  - WHITE BLOOD CELL COUNT DECREASED [None]
